FAERS Safety Report 4597853-3 (Version None)
Quarter: 2005Q1

REPORT INFORMATION
  Report Type: 
  Country: None (occurrence: None)
  Receive Date: 20050301
  Receipt Date: 20050214
  Transmission Date: 20050727
  Serious: Yes (Hospitalization)
  Sender: FDA-Public Use
  Company Number: S04-GER-07355-01

PATIENT
  Sex: Female

DRUGS (1)
  1. CIPRAMIL (CITALOPRAM HYDROCHLORIDE) [Suspect]

REACTIONS (3)
  - HEPATIC ENZYME INCREASED [None]
  - INFECTION [None]
  - PERICARDIAL EFFUSION [None]
